FAERS Safety Report 6856292-2 (Version None)
Quarter: 2010Q3

REPORT INFORMATION
  Report Type: 
  Country: None (occurrence: None)
  Receive Date: 20100719
  Receipt Date: 20100714
  Transmission Date: 20110219
  Serious: Yes (Death, Other)
  Sender: FDA-Public Use
  Company Number: PHHY2010US36494

PATIENT
  Sex: Male

DRUGS (2)
  1. EXJADE [Suspect]
     Indication: HAEMOCHROMATOSIS
     Dosage: 1250 MG, UNK
     Route: 048
     Dates: end: 20100401
  2. EXJADE [Suspect]
     Indication: SICKLE CELL ANAEMIA

REACTIONS (2)
  - ANGINA PECTORIS [None]
  - DEATH [None]
